FAERS Safety Report 12412104 (Version 2)
Quarter: 2016Q2

REPORT INFORMATION
  Report Type: Spontaneous
  Country: ES (occurrence: ES)
  Receive Date: 20160527
  Receipt Date: 20160607
  Transmission Date: 20160815
  Serious: Yes (Hospitalization)
  Sender: FDA-Public Use
  Company Number: ES-ABBVIE-16P-144-1638622-00

PATIENT
  Sex: Male

DRUGS (1)
  1. KREON [Suspect]
     Active Substance: PANCRELIPASE
     Indication: PANCREATIC OPERATION
     Route: 048
     Dates: start: 2006

REACTIONS (2)
  - Pancreatitis [Recovered/Resolved with Sequelae]
  - Pancreatolithiasis [Recovered/Resolved with Sequelae]

NARRATIVE: CASE EVENT DATE: 2015
